FAERS Safety Report 17049488 (Version 1)
Quarter: 2019Q4

REPORT INFORMATION
  Report Type: Report from Study
  Country: US (occurrence: US)
  Receive Date: 20191119
  Receipt Date: 20191119
  Transmission Date: 20200122
  Serious: Yes (Other)
  Sender: FDA-Public Use
  Company Number: US-MYLANLABS-2019M1112067

PATIENT
  Age: 37 Year
  Sex: Female

DRUGS (3)
  1. METHOTREXATE. [Suspect]
     Active Substance: METHOTREXATE
     Indication: RHEUMATOID ARTHRITIS
     Dosage: RECEIVED DURING FIRST TRIMESTER OF PREGNANCY
     Route: 065
  2. LEFLUNOMIDE. [Suspect]
     Active Substance: LEFLUNOMIDE
     Indication: RHEUMATOID ARTHRITIS
     Dosage: RECEIVED DURING -2 TO 2.3 WEEKS OF GESTATION
     Route: 065
  3. CHOLESTYRAMINE. [Suspect]
     Active Substance: CHOLESTYRAMINE
     Indication: DRUG TOXICITY PROPHYLAXIS
     Route: 065

REACTIONS (3)
  - Foetal death [Recovered/Resolved]
  - Contraindicated product administered [Unknown]
  - Maternal exposure during pregnancy [Recovered/Resolved]
